FAERS Safety Report 9007447 (Version 2)
Quarter: 2013Q1

REPORT INFORMATION
  Report Type: Spontaneous
  Country: US (occurrence: US)
  Receive Date: 20130110
  Receipt Date: 20130307
  Transmission Date: 20140127
  Serious: Yes (Hospitalization)
  Sender: FDA-Public Use
  Company Number: US-GILEAD-2013-0067593

PATIENT
  Sex: Female

DRUGS (2)
  1. LETAIRIS [Suspect]
     Indication: CARDIAC SEPTAL DEFECT
     Dosage: 2.5 MG, QD
     Route: 048
     Dates: start: 20120628
  2. REVATIO [Concomitant]

REACTIONS (1)
  - Respiratory syncytial virus infection [Unknown]
